FAERS Safety Report 23142132 (Version 5)
Quarter: 2025Q4

REPORT INFORMATION
  Report Type: Spontaneous
  Country: US (occurrence: US)
  Receive Date: 20231103
  Receipt Date: 20251205
  Transmission Date: 20260117
  Serious: No
  Sender: THERATECHNOLOGIES
  Company Number: US-THERATECHNOLOGIES INC.-2023-THE-TES-000433

PATIENT

DRUGS (1)
  1. EGRIFTA SV [Suspect]
     Active Substance: TESAMORELIN ACETATE
     Indication: Lipodystrophy acquired
     Dosage: 1.4 MG (0.35 ML), QD
     Route: 058
     Dates: start: 202309

REACTIONS (6)
  - Weight increased [Not Recovered/Not Resolved]
  - Injection site mass [Unknown]
  - Incorrect dose administered [Unknown]
  - Visual impairment [Unknown]
  - Injection site pain [Unknown]
  - Therapeutic product effect incomplete [Recovered/Resolved]

NARRATIVE: CASE EVENT DATE: 20231025
